FAERS Safety Report 15911850 (Version 1)
Quarter: 2019Q1

REPORT INFORMATION
  Report Type: Spontaneous
  Country: US (occurrence: US)
  Receive Date: 20190204
  Receipt Date: 20190204
  Transmission Date: 20190417
  Serious: No
  Sender: FDA-Public Use
  Company Number: US-MITSUBISHI TANABE PHARMA CORPORATION-MPE2019-0003915

PATIENT
  Sex: Female
  Weight: 43.13 kg

DRUGS (2)
  1. RILUZOLE. [Concomitant]
     Active Substance: RILUZOLE
     Route: 065
     Dates: start: 201806
  2. RADICAVA [Suspect]
     Active Substance: EDARAVONE
     Indication: AMYOTROPHIC LATERAL SCLEROSIS
     Route: 042
     Dates: start: 201810

REACTIONS (3)
  - Therapeutic response unexpected [Not Recovered/Not Resolved]
  - Pain [Not Recovered/Not Resolved]
  - Weight decreased [Not Recovered/Not Resolved]
